FAERS Safety Report 8379980-8 (Version None)
Quarter: 2012Q2

REPORT INFORMATION
  Report Type: 
  Country: None (occurrence: None)
  Receive Date: 20120523
  Receipt Date: 20120509
  Transmission Date: 20120825
  Serious: Yes (Hospitalization)
  Sender: FDA-Public Use
  Company Number: JP-ELI_LILLY_AND_COMPANY-JP201205004345

PATIENT
  Age: 88 Year
  Sex: Female

DRUGS (7)
  1. DOXAZOSIN MESYLATE [Concomitant]
     Dosage: UNK
     Route: 048
     Dates: end: 20120507
  2. BEZATOL [Concomitant]
     Dosage: UNK
     Route: 048
  3. LYRICA [Concomitant]
     Dosage: UNK
     Route: 048
     Dates: start: 20120502, end: 20120507
  4. LOSARTAN POTASSIUM AND HYDROCHLOROTHIAZIDE [Concomitant]
     Dosage: UNK
     Route: 048
     Dates: end: 20120508
  5. ALLOPURINOL [Concomitant]
     Dosage: UNK
     Route: 048
  6. CYMBALTA [Suspect]
     Indication: DEPRESSION
     Dosage: 20 MG, QD
     Route: 048
     Dates: start: 20120502, end: 20120508
  7. LYRICA [Concomitant]
     Dosage: UNK
     Route: 048
     Dates: start: 20120508, end: 20120508

REACTIONS (2)
  - RENAL IMPAIRMENT [None]
  - SOMNOLENCE [None]
